FAERS Safety Report 14606242 (Version 3)
Quarter: 2018Q2

REPORT INFORMATION
  Report Type: Report from Study
  Country: DE (occurrence: DE)
  Receive Date: 20180307
  Receipt Date: 20180405
  Transmission Date: 20180711
  Serious: Yes (Hospitalization)
  Sender: FDA-Public Use
  Company Number: DE-BIOGEN-2018BI00535376

PATIENT
  Age: 57 Year
  Sex: Female

DRUGS (8)
  1. VOLON A [Concomitant]
     Indication: PRODUCT USED FOR UNKNOWN INDICATION
     Route: 065
  2. TYSABRI [Suspect]
     Active Substance: NATALIZUMAB
     Indication: MULTIPLE SCLEROSIS
     Route: 042
     Dates: start: 20131211
  3. KREON [Concomitant]
     Active Substance: PANCRELIPASE
     Indication: COLITIS
     Dosage: 25000IE
     Route: 065
     Dates: start: 199901
  4. GABAPENTIN. [Concomitant]
     Active Substance: GABAPENTIN
     Indication: PAIN
     Dosage: 1-1-1
     Route: 048
     Dates: start: 20170130
  5. LIORESAL [Concomitant]
     Active Substance: BACLOFEN
     Indication: MUSCLE SPASTICITY
     Dosage: 30-35-30
     Route: 048
     Dates: start: 20160602
  6. EMSELEX [Concomitant]
     Active Substance: DARIFENACIN HYDROBROMIDE
     Indication: BLADDER DISORDER
     Dosage: 0-0-2
     Route: 048
     Dates: start: 20150331
  7. PANTOZOL [Concomitant]
     Active Substance: PANTOPRAZOLE SODIUM
     Indication: CHRONIC GASTRITIS
     Dosage: 0-0-1
     Route: 048
     Dates: start: 199901
  8. IBUPROFEN. [Concomitant]
     Active Substance: IBUPROFEN
     Indication: PAIN
     Dosage: 0-0-1
     Route: 048
     Dates: start: 199901

REACTIONS (2)
  - Quadriparesis [Recovered/Resolved]
  - Post lumbar puncture syndrome [Recovered/Resolved]

NARRATIVE: CASE EVENT DATE: 20170519
